FAERS Safety Report 9952011 (Version 1)
Quarter: 2014Q1

REPORT INFORMATION
  Report Type: Spontaneous
  Country: US (occurrence: US)
  Receive Date: 20140304
  Receipt Date: 20140304
  Transmission Date: 20141002
  Serious: No
  Sender: FDA-Public Use
  Company Number: US-AMGEN-USASP2013081714

PATIENT
  Age: 19 Year
  Sex: Female

DRUGS (1)
  1. ENBREL [Suspect]
     Indication: JUVENILE IDIOPATHIC ARTHRITIS
     Dosage: 50 MG/ML, QWK
     Route: 058
     Dates: start: 2012, end: 201310

REACTIONS (4)
  - Condition aggravated [Unknown]
  - Musculoskeletal stiffness [Unknown]
  - Pain [Unknown]
  - Joint swelling [Unknown]
